FAERS Safety Report 5251727-3 (Version None)
Quarter: 2007Q1

REPORT INFORMATION
  Report Type: 
  Country: None (occurrence: None)
  Receive Date: 20070228
  Receipt Date: 20061020
  Transmission Date: 20070707
  Serious: No
  Sender: FDA-Public Use
  Company Number: US-GLAXOSMITHKLINE-A0624308A

PATIENT
  Sex: Male

DRUGS (1)
  1. LAMICTAL [Suspect]
     Dosage: 100MG PER DAY
     Route: 048

REACTIONS (4)
  - DRUG INEFFECTIVE [None]
  - DRUG WITHDRAWAL SYNDROME [None]
  - MOOD SWINGS [None]
  - PAIN [None]
